FAERS Safety Report 24955609 (Version 8)
Quarter: 2025Q1

REPORT INFORMATION
  Report Type: Spontaneous
  Country: CA (occurrence: CA)
  Receive Date: 20250211
  Receipt Date: 20250328
  Transmission Date: 20250408
  Serious: Yes (Hospitalization, Other)
  Sender: ASTELLAS
  Company Number: CA-PFIZER INC-PV202500007600

PATIENT
  Age: 75 Year
  Sex: Male
  Weight: 100 kg

DRUGS (7)
  1. PADCEV [Suspect]
     Active Substance: ENFORTUMAB VEDOTIN-EJFV
     Indication: Transitional cell carcinoma metastatic
     Route: 042
     Dates: start: 20250114
  2. PADCEV [Suspect]
     Active Substance: ENFORTUMAB VEDOTIN-EJFV
     Route: 042
     Dates: start: 20250204
  3. PADCEV [Suspect]
     Active Substance: ENFORTUMAB VEDOTIN-EJFV
     Route: 042
     Dates: start: 20250311
  4. PADCEV [Suspect]
     Active Substance: ENFORTUMAB VEDOTIN-EJFV
     Route: 042
     Dates: start: 20250318
  5. JARDIANCE [Concomitant]
     Active Substance: EMPAGLIFLOZIN
     Indication: Product used for unknown indication
     Route: 065
  6. KEYTRUDA [Concomitant]
     Active Substance: PEMBROLIZUMAB
     Indication: Product used for unknown indication
     Route: 065
  7. METFORMIN [Concomitant]
     Active Substance: METFORMIN HYDROCHLORIDE
     Indication: Product used for unknown indication
     Route: 065

REACTIONS (13)
  - Blood pressure decreased [Recovering/Resolving]
  - Heart rate increased [Recovering/Resolving]
  - Weight decreased [Unknown]
  - Renal disorder [Recovering/Resolving]
  - Atrial fibrillation [Unknown]
  - Supraventricular tachycardia [Unknown]
  - Dry mouth [Unknown]
  - Oedema peripheral [Unknown]
  - Fatigue [Unknown]
  - Constipation [Unknown]
  - Nausea [Recovered/Resolved]
  - Ageusia [Unknown]
  - Wheelchair user [Unknown]

NARRATIVE: CASE EVENT DATE: 20250114
